FAERS Safety Report 11909015 (Version 2)
Quarter: 2016Q1

REPORT INFORMATION
  Report Type: Spontaneous
  Country: JP (occurrence: JP)
  Receive Date: 20160111
  Receipt Date: 20160119
  Transmission Date: 20160526
  Serious: Yes (Death, Life-Threatening)
  Sender: FDA-Public Use
  Company Number: JP-009507513-1601JPN002631

PATIENT
  Age: 76 Year
  Sex: Female
  Weight: 48 kg

DRUGS (12)
  1. ALDACTONE A [Concomitant]
     Active Substance: SPIRONOLACTONE
     Indication: CARDIAC FAILURE
     Dosage: 50 MG, QD, ROUTE OF ADMINISTRATION: VIA TUBE
     Route: 050
     Dates: start: 20151107, end: 20151127
  2. METLIGINE [Concomitant]
     Active Substance: MIDODRINE HYDROCHLORIDE
     Indication: HEPATORENAL SYNDROME
     Dosage: 4 MG, BID, ROUTE OF ADMINISTRATION: VIA TUBE
     Route: 050
     Dates: start: 20151107, end: 20151112
  3. CANCIDAS [Suspect]
     Active Substance: CASPOFUNGIN ACETATE
     Indication: PROPHYLAXIS
     Dosage: 50 MG, QD
     Route: 041
     Dates: start: 20151110, end: 20151119
  4. INOVAN (DOPAMINE HYDROCHLORIDE) [Concomitant]
     Indication: CARDIAC FAILURE
     Dosage: DAILY DOSAGE UNKNOWN, CONTINUOUS INFUSION
     Route: 042
     Dates: start: 20151106, end: 20151127
  5. THYRADIN-S [Concomitant]
     Active Substance: LEVOTHYROXINE
     Indication: HYPOTHYROIDISM
     Dosage: 125 MICROGRAM, QD, ROUTE OF ADMINISTRATION: VIA TUBE
     Route: 050
     Dates: start: 20151028, end: 20151127
  6. URSO [Concomitant]
     Active Substance: URSODIOL
     Indication: HEPATORENAL SYNDROME
     Dosage: 1 G, TID, ROUTE OF ADMINISTRATION: VIA TUBE
     Route: 050
     Dates: start: 20151030, end: 20151127
  7. PLASMA PROTEIN FRACTION [Concomitant]
     Active Substance: PLASMA PROTEIN FRACTION (HUMAN)
     Indication: HEPATORENAL SYNDROME
     Dosage: 4 UNDER 1000 UNIT, QD
     Route: 051
     Dates: start: 20151108, end: 20151111
  8. ZOSYN [Concomitant]
     Active Substance: PIPERACILLIN SODIUM\TAZOBACTAM SODIUM
     Indication: DEVICE RELATED INFECTION
     Dosage: DAILY DOSAGE UNKNOWN
     Route: 042
     Dates: start: 20151103, end: 20151110
  9. OMEPRAL [Concomitant]
     Active Substance: OMEPRAZOLE
     Indication: PEPTIC ULCER
     Dosage: 20 MG, BID
     Route: 051
     Dates: start: 20151026, end: 20151110
  10. CANCIDAS [Suspect]
     Active Substance: CASPOFUNGIN ACETATE
     Indication: PROPHYLAXIS
     Dosage: 70 MG, QD
     Route: 041
     Dates: start: 20151109, end: 20151109
  11. EQUA [Concomitant]
     Active Substance: VILDAGLIPTIN
     Indication: DIABETES MELLITUS
     Dosage: 50 MG, QD, ROUTE OF ADMINISTRATION: VIA TUBE
     Route: 050
     Dates: start: 20151028, end: 20151127
  12. NOVASTAN [Concomitant]
     Active Substance: ARGATROBAN
     Indication: HEPARIN-INDUCED THROMBOCYTOPENIA
     Dosage: DAILY DOSE UNKNOWN, CONITNUOS INFUSION
     Route: 042
     Dates: start: 20151015, end: 20151127

REACTIONS (2)
  - Renal impairment [Fatal]
  - Gastrointestinal necrosis [Fatal]

NARRATIVE: CASE EVENT DATE: 20151120
